FAERS Safety Report 10435730 (Version 4)
Quarter: 2016Q2

REPORT INFORMATION
  Report Type: Report from Study
  Country: JP (occurrence: JP)
  Receive Date: 20140908
  Receipt Date: 20160415
  Transmission Date: 20160815
  Serious: Yes (Disabling)
  Sender: FDA-Public Use
  Company Number: JP-ASTELLAS-2013JP010267

PATIENT
  Age: 16 Year
  Sex: Female
  Weight: 59 kg

DRUGS (67)
  1. PREDNISOLONE. [Concomitant]
     Active Substance: PREDNISOLONE
     Dosage: 10 MG AND 7.5 MG ALTERNATELY, ONCE DAILY
     Route: 048
     Dates: start: 20100803, end: 20101201
  2. PREDNISOLONE. [Concomitant]
     Active Substance: PREDNISOLONE
     Dosage: 15 MG 10 MG ALTERNATELY, ONCE DAILY
     Route: 048
     Dates: start: 20111222, end: 20120208
  3. PREDNISOLONE. [Concomitant]
     Active Substance: PREDNISOLONE
     Dosage: 7.5 MG AND 5 MG ALTERNATELY, ONCE WEEKLY
     Route: 048
     Dates: start: 20121108, end: 20130123
  4. PREDNISOLONE. [Concomitant]
     Active Substance: PREDNISOLONE
     Route: 048
     Dates: start: 20150117, end: 20150224
  5. PREDNISOLONE. [Concomitant]
     Active Substance: PREDNISOLONE
     Route: 048
     Dates: start: 20150117, end: 20150224
  6. METHYLPREDNISOLONE SODIUM SUCCINATE. [Concomitant]
     Active Substance: METHYLPREDNISOLONE SODIUM SUCCINATE
     Route: 065
     Dates: start: 20120611, end: 20120613
  7. GASTER [Concomitant]
     Active Substance: FAMOTIDINE
     Indication: PROPHYLAXIS
     Dosage: UNK UNK, UNKNOWN FREQ.
     Route: 048
     Dates: start: 20100422, end: 20101007
  8. TACROLIMUS. [Suspect]
     Active Substance: TACROLIMUS
     Route: 048
     Dates: start: 20130914, end: 20140520
  9. CELLCEPT [Suspect]
     Active Substance: MYCOPHENOLATE MOFETIL\MYCOPHENOLATE MOFETIL HYDROCHLORIDE
     Route: 048
     Dates: start: 20121228, end: 20130529
  10. CELLCEPT [Suspect]
     Active Substance: MYCOPHENOLATE MOFETIL\MYCOPHENOLATE MOFETIL HYDROCHLORIDE
     Route: 048
     Dates: start: 20130530, end: 20140624
  11. PREDNISOLONE. [Concomitant]
     Active Substance: PREDNISOLONE
     Route: 048
     Dates: start: 20110428, end: 20110511
  12. METHYLPREDNISOLONE SODIUM SUCCINATE. [Concomitant]
     Active Substance: METHYLPREDNISOLONE SODIUM SUCCINATE
     Route: 065
     Dates: start: 20110324, end: 20110328
  13. SELBEX [Concomitant]
     Active Substance: TEPRENONE
     Indication: PROPHYLAXIS
     Dosage: UNK UNK, UNKNOWN FREQ.
     Route: 048
  14. SEFTAC [Concomitant]
     Active Substance: TEPRENONE
     Indication: PROPHYLAXIS
     Route: 048
  15. LOSARTAN K [Concomitant]
     Indication: LUPUS NEPHRITIS
     Route: 048
  16. KENACORT [Concomitant]
     Active Substance: TRIAMCINOLONE
     Route: 030
     Dates: start: 20130718, end: 20130719
  17. LIPLE [Concomitant]
     Indication: PERIPHERAL ARTERY THROMBOSIS
     Dosage: UNK UNK, UNKNOWN FREQ.
     Route: 065
  18. PREDNISOLONE. [Concomitant]
     Active Substance: PREDNISOLONE
     Indication: LUPUS NEPHRITIS
     Route: 048
     Dates: end: 20090929
  19. PREDNISOLONE. [Concomitant]
     Active Substance: PREDNISOLONE
     Dosage: 10 MG 7.5 MG ALTERNATELY, ONCE DAILY
     Route: 048
     Dates: start: 20120831, end: 20120917
  20. PREDNISOLONE. [Concomitant]
     Active Substance: PREDNISOLONE
     Route: 048
     Dates: start: 20150225
  21. ENDOXAN                            /00021101/ [Concomitant]
     Active Substance: CYCLOPHOSPHAMIDE
     Route: 042
     Dates: start: 20131214, end: 20131214
  22. ENDOXAN                            /00021101/ [Concomitant]
     Active Substance: CYCLOPHOSPHAMIDE
     Route: 042
     Dates: start: 20141108, end: 20141108
  23. UROKINASE [Concomitant]
     Active Substance: UROKINASE
     Indication: PERIPHERAL ARTERY THROMBOSIS
     Dosage: UNK UNK, UNKNOWN FREQ.
     Route: 065
  24. TACROLIMUS. [Suspect]
     Active Substance: TACROLIMUS
     Route: 048
     Dates: start: 20130530, end: 20130913
  25. PREDNISOLONE. [Concomitant]
     Active Substance: PREDNISOLONE
     Route: 048
     Dates: start: 20090930, end: 20091126
  26. PREDNISOLONE. [Concomitant]
     Active Substance: PREDNISOLONE
     Route: 048
     Dates: start: 20100121, end: 20100325
  27. METHYLPREDNISOLONE SODIUM SUCCINATE. [Concomitant]
     Active Substance: METHYLPREDNISOLONE SODIUM SUCCINATE
     Route: 065
     Dates: start: 20130808, end: 20130810
  28. PERSANTIN [Concomitant]
     Active Substance: DIPYRIDAMOLE
     Indication: LUPUS NEPHRITIS
     Dosage: UNK UNK, UNKNOWN FREQ.
     Route: 048
  29. ANGINAL                            /00042901/ [Concomitant]
     Indication: LUPUS NEPHRITIS
     Route: 048
     Dates: end: 20131030
  30. TACROLIMUS. [Suspect]
     Active Substance: TACROLIMUS
     Route: 048
     Dates: start: 20090828, end: 20100120
  31. TACROLIMUS. [Suspect]
     Active Substance: TACROLIMUS
     Route: 048
     Dates: start: 20101007, end: 20121227
  32. TACROLIMUS. [Suspect]
     Active Substance: TACROLIMUS
     Route: 048
     Dates: start: 20121228, end: 20130529
  33. PREDNISOLONE. [Concomitant]
     Active Substance: PREDNISOLONE
     Route: 048
     Dates: start: 20101202, end: 20101221
  34. PREDNISOLONE. [Concomitant]
     Active Substance: PREDNISOLONE
     Route: 048
     Dates: start: 20110512, end: 20110608
  35. PREDNISOLONE. [Concomitant]
     Active Substance: PREDNISOLONE
     Route: 048
     Dates: start: 20110609, end: 20110818
  36. PREDNISOLONE. [Concomitant]
     Active Substance: PREDNISOLONE
     Route: 048
     Dates: start: 20120614, end: 20120830
  37. PREDNISOLONE. [Concomitant]
     Active Substance: PREDNISOLONE
     Route: 048
     Dates: start: 20130124, end: 20131010
  38. PREDNISOLONE. [Concomitant]
     Active Substance: PREDNISOLONE
     Dosage: 2.5 MG, FIVE TIMES WEEKLY
     Route: 048
     Dates: start: 20150225
  39. METHYLPREDNISOLONE SODIUM SUCCINATE. [Concomitant]
     Active Substance: METHYLPREDNISOLONE SODIUM SUCCINATE
     Indication: LUPUS NEPHRITIS
     Route: 065
     Dates: start: 20101222, end: 20101226
  40. WARFARIN [Concomitant]
     Active Substance: WARFARIN
     Indication: PERIPHERAL ARTERY THROMBOSIS
     Route: 048
     Dates: start: 20131112, end: 20140323
  41. ENDOXAN                            /00021101/ [Concomitant]
     Active Substance: CYCLOPHOSPHAMIDE
     Route: 042
     Dates: start: 20150223, end: 20150223
  42. TACROLIMUS. [Suspect]
     Active Substance: TACROLIMUS
     Route: 048
     Dates: start: 20100121, end: 20100830
  43. CELLCEPT [Suspect]
     Active Substance: MYCOPHENOLATE MOFETIL\MYCOPHENOLATE MOFETIL HYDROCHLORIDE
     Route: 048
     Dates: start: 20140625
  44. PREDNISOLONE. [Concomitant]
     Active Substance: PREDNISOLONE
     Dosage: 10 MG AND 7.5 MG ALTERNATELY, ONCE DAILY
     Route: 048
     Dates: start: 20101227, end: 20110427
  45. PREDNISOLONE. [Concomitant]
     Active Substance: PREDNISOLONE
     Route: 048
     Dates: start: 20120918, end: 20121107
  46. PREDNISOLONE. [Concomitant]
     Active Substance: PREDNISOLONE
     Route: 048
     Dates: start: 20131011, end: 20140324
  47. PREDNISOLONE. [Concomitant]
     Active Substance: PREDNISOLONE
     Route: 048
     Dates: start: 20140428, end: 20150116
  48. MIZORIBINE [Concomitant]
     Active Substance: MIZORIBINE
     Indication: LUPUS NEPHRITIS
     Route: 048
     Dates: end: 20090821
  49. MIZORIBINE [Concomitant]
     Active Substance: MIZORIBINE
     Route: 048
     Dates: start: 20110217, end: 20120613
  50. NU-LOTAN [Concomitant]
     Active Substance: LOSARTAN POTASSIUM
     Indication: LUPUS NEPHRITIS
     Route: 048
  51. BERAPROST NA [Concomitant]
     Active Substance: BERAPROST SODIUM
     Indication: PERIPHERAL ARTERY THROMBOSIS
     Route: 048
     Dates: start: 20131030
  52. WARFARIN [Concomitant]
     Active Substance: WARFARIN
     Route: 048
     Dates: start: 20140324
  53. KENACORT [Concomitant]
     Active Substance: TRIAMCINOLONE
     Indication: LUPUS NEPHRITIS
     Route: 030
     Dates: start: 20130425, end: 20130426
  54. TACROLIMUS. [Suspect]
     Active Substance: TACROLIMUS
     Route: 048
     Dates: start: 20100831, end: 20101006
  55. PREDNISOLONE. [Concomitant]
     Active Substance: PREDNISOLONE
     Route: 048
     Dates: start: 20100326, end: 20100802
  56. PREDNISOLONE. [Concomitant]
     Active Substance: PREDNISOLONE
     Route: 048
     Dates: start: 20110819, end: 20111221
  57. PREDNISOLONE. [Concomitant]
     Active Substance: PREDNISOLONE
     Dosage: 12.5 MG 10 MG ALTERNATELY, ONCE DAILY
     Route: 048
     Dates: start: 20120209, end: 20120613
  58. ANGINAL                            /00042901/ [Concomitant]
     Indication: PERIPHERAL ARTERY THROMBOSIS
     Route: 048
     Dates: start: 20131031
  59. ENDOXAN                            /00021101/ [Concomitant]
     Active Substance: CYCLOPHOSPHAMIDE
     Indication: LUPUS NEPHRITIS
     Route: 042
     Dates: start: 20131107, end: 20131107
  60. TACROLIMUS. [Suspect]
     Active Substance: TACROLIMUS
     Indication: LUPUS NEPHRITIS
     Route: 048
     Dates: start: 20090818, end: 20090827
  61. TACROLIMUS. [Suspect]
     Active Substance: TACROLIMUS
     Route: 048
     Dates: start: 20140521
  62. CELLCEPT [Suspect]
     Active Substance: MYCOPHENOLATE MOFETIL\MYCOPHENOLATE MOFETIL HYDROCHLORIDE
     Indication: LUPUS NEPHRITIS
     Route: 048
     Dates: start: 20120614, end: 20121227
  63. PREDNISOLONE. [Concomitant]
     Active Substance: PREDNISOLONE
     Route: 048
     Dates: start: 20091127, end: 20100120
  64. PREDNISOLONE. [Concomitant]
     Active Substance: PREDNISOLONE
     Route: 048
     Dates: start: 20140325, end: 20140427
  65. TEPRENONE [Concomitant]
     Active Substance: TEPRENONE
     Indication: PROPHYLAXIS
     Route: 048
  66. SARPOGRELATE HYDROCHLORIDE [Concomitant]
     Active Substance: SARPOGRELATE
     Indication: PERIPHERAL ARTERY THROMBOSIS
     Route: 048
     Dates: start: 20131030
  67. HEPARIN [Concomitant]
     Active Substance: HEPARIN SODIUM
     Indication: PERIPHERAL ARTERY THROMBOSIS
     Dosage: UNK UNK, UNKNOWN FREQ.
     Route: 065

REACTIONS (4)
  - Peripheral artery thrombosis [Recovered/Resolved with Sequelae]
  - Off label use [Unknown]
  - Herpes zoster [Recovered/Resolved]
  - Herpes zoster [Recovered/Resolved]

NARRATIVE: CASE EVENT DATE: 20090818
